FAERS Safety Report 9779047 (Version 1)
Quarter: 2013Q4

REPORT INFORMATION
  Report Type: Other
  Country: US (occurrence: US)
  Receive Date: 20131223
  Receipt Date: 20131223
  Transmission Date: 20140711
  Serious: Yes (Other)
  Sender: FDA-Public Use
  Company Number: US-ENDO PHARMACEUTICALS INC.-OPCR20130350

PATIENT
  Sex: 0

DRUGS (1)
  1. OPANA ER [Suspect]
     Indication: DRUG DIVERSION
     Dosage: UNK
     Route: 065

REACTIONS (2)
  - Drug diversion [Unknown]
  - Wrong technique in drug usage process [Unknown]
